FAERS Safety Report 15414187 (Version 1)
Quarter: 2018Q3

REPORT INFORMATION
  Report Type: Spontaneous
  Country: NL (occurrence: NL)
  Receive Date: 20180921
  Receipt Date: 20180921
  Transmission Date: 20181010
  Serious: Yes (Hospitalization, Other)
  Sender: FDA-Public Use
  Company Number: PHHY2018NL087234

PATIENT
  Age: 33 Year
  Sex: Female

DRUGS (3)
  1. MESALAZINE [Suspect]
     Active Substance: MESALAMINE
     Indication: COLITIS ULCERATIVE
     Dosage: UNK
     Route: 065
  2. PREDNISONE. [Suspect]
     Active Substance: PREDNISONE
     Indication: COLITIS ULCERATIVE
     Route: 065
  3. INFLIXIMAB [Suspect]
     Active Substance: INFLIXIMAB
     Indication: COLITIS ULCERATIVE
     Dosage: 1 UNK, UNK
     Route: 065
     Dates: start: 201706

REACTIONS (8)
  - Tuberculosis [Recovered/Resolved]
  - Headache [Recovering/Resolving]
  - Pyrexia [Recovering/Resolving]
  - Maternal exposure during pregnancy [Unknown]
  - Disseminated tuberculosis [Recovering/Resolving]
  - Night sweats [Recovering/Resolving]
  - Normal newborn [Unknown]
  - Dyspnoea [Recovering/Resolving]
